FAERS Safety Report 8870463 (Version 1)
Quarter: 2012Q4

REPORT INFORMATION
  Report Type: Spontaneous
  Country: US (occurrence: None)
  Receive Date: 20121026
  Receipt Date: 20121026
  Transmission Date: 20130627
  Serious: No
  Sender: FDA-Public Use
  Company Number: None

PATIENT
  Age: 50 Year
  Sex: Female

DRUGS (1)
  1. FORTEO 20MCG LILLY [Suspect]
     Indication: OSTEOPOROSIS
     Route: 058
     Dates: start: 201208

REACTIONS (1)
  - Back pain [None]
